FAERS Safety Report 25290828 (Version 1)
Quarter: 2025Q2

REPORT INFORMATION
  Report Type: Spontaneous
  Country: US (occurrence: US)
  Receive Date: 20250510
  Receipt Date: 20250510
  Transmission Date: 20250716
  Serious: No
  Sender: SANOFI AVENTIS
  Company Number: US-SA-2025SA116343

PATIENT
  Sex: Female
  Weight: 80.45 kg

DRUGS (20)
  1. DUPIXENT [Suspect]
     Active Substance: DUPILUMAB
     Indication: Asthma
     Dosage: 300 MG, QOW
     Route: 058
  2. DUPIXENT [Suspect]
     Active Substance: DUPILUMAB
     Indication: Chronic obstructive pulmonary disease
  3. DUPIXENT [Suspect]
     Active Substance: DUPILUMAB
     Indication: Dermatitis
  4. POTASSIUM [Concomitant]
     Active Substance: POTASSIUM
  5. DOXEPIN [Concomitant]
     Active Substance: DOXEPIN
  6. ALLOPURINOL [Concomitant]
     Active Substance: ALLOPURINOL
  7. FLECAINIDE ACETATE [Concomitant]
     Active Substance: FLECAINIDE ACETATE
  8. METOPROLOL TARTRATE [Concomitant]
     Active Substance: METOPROLOL TARTRATE
  9. SPIRONOLACTONE [Concomitant]
     Active Substance: SPIRONOLACTONE
  10. ACETAMINOPHEN\HYDROCODONE [Concomitant]
     Active Substance: ACETAMINOPHEN\HYDROCODONE
  11. ANASTROZOLE [Concomitant]
     Active Substance: ANASTROZOLE
  12. OXYGEN [Concomitant]
     Active Substance: OXYGEN
  13. MINERALS\VITAMINS [Concomitant]
     Active Substance: MINERALS\VITAMINS
  14. LEVOTHYROXINE SODIUM [Concomitant]
     Active Substance: LEVOTHYROXINE SODIUM
  15. XARELTO [Concomitant]
     Active Substance: RIVAROXABAN
  16. Omega [Concomitant]
  17. VITAMIN D3 [Concomitant]
     Active Substance: CHOLECALCIFEROL
  18. TRIAMCINOLONE ACETONIDE [Concomitant]
     Active Substance: TRIAMCINOLONE ACETONIDE
  19. DESOXIMETASONE [Concomitant]
     Active Substance: DESOXIMETASONE
  20. ATORVASTATIN CALCIUM [Concomitant]
     Active Substance: ATORVASTATIN CALCIUM

REACTIONS (3)
  - Malaise [Unknown]
  - Oropharyngeal pain [Unknown]
  - Product use in unapproved indication [Unknown]
